FAERS Safety Report 22817122 (Version 7)
Quarter: 2023Q4

REPORT INFORMATION
  Report Type: Spontaneous
  Country: US (occurrence: US)
  Receive Date: 20230812
  Receipt Date: 20231007
  Transmission Date: 20240109
  Serious: Yes (Hospitalization, Other)
  Sender: FDA-Public Use
  Company Number: US-UNITED THERAPEUTICS-UNT-2023-022279

PATIENT
  Sex: Female
  Weight: 149.21 kg

DRUGS (8)
  1. REMODULIN [Suspect]
     Active Substance: TREPROSTINIL
     Indication: Pulmonary arterial hypertension
     Dosage: 0.014 ?G/KG (SELF-FILLED 1.7 ML PER CASSETTE; AT AN INFUSION RATE OF 17 MCL PER HOUR), CONTINUING
     Route: 058
     Dates: start: 2023
  2. REMODULIN [Suspect]
     Active Substance: TREPROSTINIL
     Dosage: 0.013 ?G/KG (SELF-FILLED 1.7 ML PER CASSETTE; AT AN INFUSION RATE OF 16 MCL PER HOUR), CONTINUING
     Route: 058
     Dates: start: 2023, end: 20230816
  3. REMODULIN [Suspect]
     Active Substance: TREPROSTINIL
     Dosage: 0.016 ?G/KG (SELF-FILL WITH 1.9 ML/CASSETTE; RATE 19 MCL/HOUR), CONTINUING
     Route: 058
     Dates: start: 2023
  4. REMODULIN [Suspect]
     Active Substance: TREPROSTINIL
     Dosage: UNK (SELF FILL WITH 1.7ML PER CASSETTE, AT A PUMP RATE OF 13 MCL/HOUR), CONTINUING
     Route: 058
     Dates: start: 2023, end: 2023
  5. REMODULIN [Suspect]
     Active Substance: TREPROSTINIL
     Dosage: UNK (DOSE INCREASED), CONTINUING
     Route: 058
     Dates: start: 2023
  6. REMODULIN [Suspect]
     Active Substance: TREPROSTINIL
     Dosage: UNK, CONTINUING
     Route: 058
     Dates: start: 20230713
  7. TADALAFIL [Concomitant]
     Active Substance: TADALAFIL
     Indication: Product used for unknown indication
     Dosage: UNK
     Route: 065
     Dates: end: 2023
  8. SODIUM CHLORIDE [Concomitant]
     Active Substance: SODIUM CHLORIDE
     Indication: Product used for unknown indication
     Dosage: UNK
     Route: 065

REACTIONS (14)
  - Cardiac failure congestive [Unknown]
  - COVID-19 [Unknown]
  - Acute respiratory failure [Unknown]
  - Pulmonary hypertension [Unknown]
  - Food poisoning [Recovering/Resolving]
  - Gastrointestinal disorder [Unknown]
  - Blood glucose abnormal [Unknown]
  - Chest discomfort [Unknown]
  - Dyspnoea [Unknown]
  - Headache [Unknown]
  - Product leakage [Unknown]
  - Illness [Unknown]
  - Dyspnoea exertional [Not Recovered/Not Resolved]
  - Product use issue [Recovered/Resolved]

NARRATIVE: CASE EVENT DATE: 20230101
